FAERS Safety Report 7490604-4 (Version None)
Quarter: 2011Q2

REPORT INFORMATION
  Report Type: 
  Country: None (occurrence: None)
  Receive Date: 20110519
  Receipt Date: 20110509
  Transmission Date: 20111010
  Serious: Yes (Death, Other)
  Sender: FDA-Public Use
  Company Number: IT-BRISTOL-MYERS SQUIBB COMPANY-15728652

PATIENT
  Age: 73 Year
  Sex: Male

DRUGS (8)
  1. PREDNISOLONE [Suspect]
     Indication: LYMPHOMA
     Dosage: 50MG, THEN 40 MG AND 30MG.
     Dates: start: 20070801
  2. MITOXANTRONE [Suspect]
     Indication: LYMPHOMA
     Dates: end: 20070301
  3. RITUXIMAB [Suspect]
     Indication: LYMPHOMA
     Dates: end: 20070301
  4. ETOPOSIDE [Suspect]
     Indication: LYMPHOMA
     Dates: end: 20070301
  5. ADEFOVIR DIPIVOXIL KIT [Suspect]
     Indication: HEPATITIS B
     Dates: start: 20070101
  6. LAMIVUDINE [Suspect]
     Indication: HEPATITIS B
     Dates: start: 20070301, end: 20070101
  7. IFOSFAMIDE [Suspect]
     Indication: LYMPHOMA
     Dates: end: 20070301
  8. MESNA [Suspect]
     Indication: LYMPHOMA
     Dates: end: 20070301

REACTIONS (2)
  - HEPATIC FAILURE [None]
  - HEPATITIS B [None]
